FAERS Safety Report 14121214 (Version 3)
Quarter: 2018Q1

REPORT INFORMATION
  Report Type: Spontaneous
  Country: DE (occurrence: DE)
  Receive Date: 20171024
  Receipt Date: 20180308
  Transmission Date: 20180508
  Serious: Yes (Other)
  Sender: FDA-Public Use
  Company Number: DE-PFIZER INC-2017453619

PATIENT
  Sex: Female

DRUGS (2)
  1. IBRANCE [Suspect]
     Active Substance: PALBOCICLIB
     Indication: BREAST CANCER METASTATIC
     Dosage: 125 MG, CYCLIC
  2. LETROZOLE. [Concomitant]
     Active Substance: LETROZOLE
     Dosage: UNK

REACTIONS (18)
  - Urinary tract infection [Unknown]
  - Dysphagia [Unknown]
  - Aphthous ulcer [Unknown]
  - Hypoaesthesia [Unknown]
  - Malaise [Unknown]
  - Dyspnoea [Unknown]
  - Decreased appetite [Unknown]
  - White blood cell count decreased [Unknown]
  - Rhinorrhoea [Unknown]
  - Dizziness [Unknown]
  - Neutrophil count abnormal [Unknown]
  - Stomatitis [Unknown]
  - Skin disorder [Unknown]
  - Polyneuropathy [Unknown]
  - Platelet count decreased [Unknown]
  - Oropharyngeal pain [Unknown]
  - Headache [Unknown]
  - Feeding disorder [Unknown]
